FAERS Safety Report 24216689 (Version 1)
Quarter: 2024Q3

REPORT INFORMATION
  Report Type: Spontaneous
  Country: KR (occurrence: KR)
  Receive Date: 20240816
  Receipt Date: 20240816
  Transmission Date: 20241017
  Serious: Yes (Other)
  Sender: MACLEODS
  Company Number: KR-MACLEODS PHARMA-MAC2024048780

PATIENT

DRUGS (2)
  1. DIMETHYL FUMARATE [Suspect]
     Active Substance: DIMETHYL FUMARATE
     Indication: Psoriasis
     Dosage: 30 MG/D + INCREASED BY 30 MG/D EVERY WEEK, REACHING A TOTAL OF 120 MG/DAY AT WEEK 4
     Route: 065
  2. BETAMETHASONE DIPROPIONATE\CALCIPOTRIENE [Concomitant]
     Active Substance: BETAMETHASONE DIPROPIONATE\CALCIPOTRIENE
     Indication: Psoriasis
     Dosage: IN FORM OF GEL, FOAM, OR OINTMENT
     Route: 065

REACTIONS (1)
  - Epilepsy [Recovered/Resolved]
